FAERS Safety Report 9224903 (Version 1)
Quarter: 2013Q2

REPORT INFORMATION
  Report Type: Report from Study
  Country: US (occurrence: US)
  Receive Date: 20130411
  Receipt Date: 20130411
  Transmission Date: 20140414
  Serious: No
  Sender: FDA-Public Use
  Company Number: US-VERTEX PHARMACEUTICALS INC.-2013-004677

PATIENT
  Age: 62 Year
  Sex: Female

DRUGS (10)
  1. VX-950 (TELAPREVIR) [Suspect]
     Indication: HEPATITIS C
     Dosage: 750 MG, TID
     Route: 048
     Dates: start: 20130312
  2. RIBAVIRIN [Suspect]
     Indication: HEPATITIS C
     Dosage: 600 MG AM, 400 MG PM
     Route: 048
     Dates: start: 20130312
  3. PEGASYS [Suspect]
     Indication: HEPATITIS C
     Dosage: 180 ?G, QW
     Route: 058
     Dates: start: 20130312
  4. METFORMIN HCL [Concomitant]
     Dosage: 500 MG, BID
     Route: 048
  5. LISINOPRIL HCTZ [Concomitant]
     Dosage: 2 DF, QD
     Route: 048
  6. GINKGO BILOBA [Concomitant]
     Dosage: 120 MG, QD
     Route: 048
  7. FISH OIL [Concomitant]
     Dosage: 1000 MG, QD
     Route: 048
  8. ASPIRIN [Concomitant]
     Dosage: 81 MG, QD
     Route: 048
  9. VITAMIN D3 [Concomitant]
     Dosage: 5000 UT, QD
     Route: 048
  10. MULTIVITAMIN [Concomitant]
     Dosage: 1 DF, QD
     Route: 048

REACTIONS (5)
  - Headache [Unknown]
  - Hypersomnia [Unknown]
  - Fatigue [Unknown]
  - Frequent bowel movements [Unknown]
  - Proctalgia [Unknown]
